FAERS Safety Report 25062892 (Version 1)
Quarter: 2025Q1

REPORT INFORMATION
  Report Type: Spontaneous
  Country: IL (occurrence: IL)
  Receive Date: 20250311
  Receipt Date: 20250311
  Transmission Date: 20250409
  Serious: Yes (Other)
  Sender: Steriscience PTE
  Company Number: IL-STERISCIENCE B.V.-2025-ST-000421

PATIENT
  Sex: Female

DRUGS (2)
  1. AMPICILLIN [Suspect]
     Active Substance: AMPICILLIN
     Indication: Antibiotic prophylaxis
     Route: 065
  2. GENTAMICIN [Suspect]
     Active Substance: GENTAMICIN
     Indication: Amniotic cavity infection
     Route: 065

REACTIONS (3)
  - Amniotic cavity infection [Unknown]
  - Nonreassuring foetal heart rate pattern [Unknown]
  - Maternal exposure during pregnancy [Unknown]
